FAERS Safety Report 16992327 (Version 2)
Quarter: 2019Q4

REPORT INFORMATION
  Report Type: Spontaneous
  Country: IE (occurrence: IE)
  Receive Date: 20191105
  Receipt Date: 20191118
  Transmission Date: 20200122
  Serious: Yes (Other)
  Sender: FDA-Public Use
  Company Number: IE-ROCHE-2453438

PATIENT
  Age: 54 Year
  Sex: Female

DRUGS (1)
  1. ESBRIET [Suspect]
     Active Substance: PIRFENIDONE
     Indication: PRODUCT USED FOR UNKNOWN INDICATION
     Route: 065
     Dates: start: 20190801

REACTIONS (3)
  - Rash [Recovered/Resolved]
  - Liver function test increased [Recovered/Resolved]
  - Burning sensation [Recovered/Resolved]
